FAERS Safety Report 23038118 (Version 3)
Quarter: 2024Q1

REPORT INFORMATION
  Report Type: Spontaneous
  Country: US (occurrence: US)
  Receive Date: 20231006
  Receipt Date: 20240131
  Transmission Date: 20240410
  Serious: Yes (Death, Other)
  Sender: FDA-Public Use
  Company Number: US-PPDUS-2023ST003321

PATIENT
  Age: 60 Year
  Sex: Female

DRUGS (1)
  1. ORSERDU [Suspect]
     Active Substance: ELACESTRANT
     Indication: Product used for unknown indication
     Route: 048
     Dates: start: 20230602

REACTIONS (8)
  - Hip fracture [Recovered/Resolved]
  - Drug ineffective [Fatal]
  - Pyrexia [Unknown]
  - Paraesthesia [Unknown]
  - Dengue fever [Unknown]
  - COVID-19 [Unknown]
  - Headache [Unknown]
  - Fatigue [Unknown]
